FAERS Safety Report 15673233 (Version 4)
Quarter: 2019Q1

REPORT INFORMATION
  Report Type: Spontaneous
  Country: DK (occurrence: DK)
  Receive Date: 20181129
  Receipt Date: 20190204
  Transmission Date: 20190417
  Serious: Yes (Other)
  Sender: FDA-Public Use
  Company Number: DK-NOVOPROD-634868

PATIENT
  Age: 57 Year
  Sex: Male
  Weight: 160 kg

DRUGS (11)
  1. NOVORAPID [Suspect]
     Active Substance: INSULIN ASPART
     Dosage: 20-26 UNITS
     Route: 065
  2. NOVORAPID [Suspect]
     Active Substance: INSULIN ASPART
     Dosage: 300 U, QD -  MORNING, NOON AND EVENING BEFORE MEALS
     Route: 065
  3. TRESIBA [Concomitant]
     Active Substance: INSULIN DEGLUDEC
     Dosage: 240 IU, QD
     Route: 065
     Dates: start: 20181028
  4. TRESIBA [Concomitant]
     Active Substance: INSULIN DEGLUDEC
     Indication: TYPE 2 DIABETES MELLITUS
     Dosage: 130 UNITS DAILY
     Route: 065
     Dates: start: 20170317, end: 20181009
  5. NOVORAPID [Suspect]
     Active Substance: INSULIN ASPART
     Dosage: 90 U, QD
     Route: 065
  6. TOUJEO [Concomitant]
     Active Substance: INSULIN GLARGINE
     Indication: TYPE 2 DIABETES MELLITUS
     Dosage: UNK
     Route: 065
  7. METFORMIN [Concomitant]
     Active Substance: METFORMIN HYDROCHLORIDE
     Indication: TYPE 2 DIABETES MELLITUS
     Dosage: 25MG
     Route: 065
  8. NOVORAPID [Suspect]
     Active Substance: INSULIN ASPART
     Indication: TYPE 2 DIABETES MELLITUS
     Dosage: UNK
     Route: 065
     Dates: start: 20110901
  9. JANUVIA [Concomitant]
     Active Substance: SITAGLIPTIN PHOSPHATE
     Indication: DIABETES MELLITUS
     Dosage: UNK
  10. FURIX [Concomitant]
     Active Substance: FUROSEMIDE
     Indication: PRODUCT USED FOR UNKNOWN INDICATION
     Dosage: DOSAGE 80 (NOT FURTHER SPECIFIED) BID
     Route: 065
  11. KALEROID [Concomitant]
     Active Substance: POTASSIUM CHLORIDE
     Indication: PRODUCT USED FOR UNKNOWN INDICATION
     Dosage: DOSAGE 750 (NOT FURTHER SPECIFIED) TID
     Route: 065

REACTIONS (5)
  - Renal impairment [Not Recovered/Not Resolved]
  - Sinus tachycardia [Unknown]
  - Cardiomyopathy [Unknown]
  - Bundle branch block left [Unknown]
  - Cardiac failure [Not Recovered/Not Resolved]

NARRATIVE: CASE EVENT DATE: 2016
